FAERS Safety Report 5249324-9 (Version None)
Quarter: 2007Q1

REPORT INFORMATION
  Report Type: 
  Country: None (occurrence: None)
  Receive Date: 20070228
  Receipt Date: 20070221
  Transmission Date: 20070707
  Serious: Yes (Death)
  Sender: FDA-Public Use
  Company Number: JP-AVENTIS-200710477JP

PATIENT
  Sex: Male

DRUGS (3)
  1. TAXOTERE [Suspect]
     Route: 041
     Dates: start: 20070208, end: 20070208
  2. PACLITAXEL [Concomitant]
  3. CARBOPLATIN [Concomitant]

REACTIONS (1)
  - HAEMOLYTIC ANAEMIA [None]
